FAERS Safety Report 6265322-0 (Version None)
Quarter: 2009Q3

REPORT INFORMATION
  Report Type: 
  Country: None (occurrence: None)
  Receive Date: 20090713
  Receipt Date: 20090702
  Transmission Date: 20100115
  Serious: Yes (Hospitalization)
  Sender: FDA-Public Use
  Company Number: BG-ASTRAZENECA-2009SE03958

PATIENT
  Age: 10847 Day
  Sex: Female

DRUGS (4)
  1. SEROQUEL [Suspect]
     Indication: SCHIZOPHRENIA
     Route: 048
     Dates: start: 20081007, end: 20081007
  2. SEROQUEL [Suspect]
     Route: 048
     Dates: start: 20081008, end: 20081008
  3. SEROQUEL [Suspect]
     Route: 048
     Dates: start: 20081009, end: 20081107
  4. SEROQUEL [Suspect]
     Route: 048
     Dates: start: 20081108, end: 20090701

REACTIONS (1)
  - SCHIZOPHRENIA [None]
